FAERS Safety Report 23991891 (Version 2)
Quarter: 2024Q3

REPORT INFORMATION
  Report Type: Report from Study
  Country: DE (occurrence: DE)
  Receive Date: 20240619
  Receipt Date: 20240725
  Transmission Date: 20241017
  Serious: Yes (Hospitalization, Other)
  Sender: ABBVIE
  Company Number: DE-ABBVIE-5802893

PATIENT
  Age: 40 Year
  Sex: Male

DRUGS (2)
  1. RINVOQ [Suspect]
     Active Substance: UPADACITINIB
     Indication: Dermatitis atopic
     Route: 048
     Dates: start: 20211101, end: 20240613
  2. CYCLOSPORINE [Concomitant]
     Active Substance: CYCLOSPORINE
     Indication: Product used for unknown indication
     Dates: start: 20070101, end: 20071008

REACTIONS (4)
  - Testicular neoplasm [Recovered/Resolved with Sequelae]
  - Bowen^s disease [Recovered/Resolved]
  - Bowen^s disease [Recovered/Resolved]
  - Testicular swelling [Unknown]

NARRATIVE: CASE EVENT DATE: 20231030
